FAERS Safety Report 8890924 (Version 2)
Quarter: 2013Q1

REPORT INFORMATION
  Report Type: Spontaneous
  Country: CA (occurrence: CA)
  Receive Date: 20121107
  Receipt Date: 20130308
  Transmission Date: 20140127
  Serious: Yes (Hospitalization)
  Sender: FDA-Public Use
  Company Number: CA-GENZYME-FABR-1002829

PATIENT
  Age: 62 Year
  Sex: Female

DRUGS (17)
  1. FABRAZYME [Suspect]
     Indication: FABRY^S DISEASE
     Dosage: 1 MG/KG, Q2W, (60 MG)
     Route: 042
     Dates: start: 20071003
  2. FABRAZYME [Suspect]
     Dosage: 1 MG/KG, Q2W, (55 MG)
     Route: 042
     Dates: start: 20111001
  3. TYLENOL [Concomitant]
     Indication: PREMEDICATION
     Dosage: 1 G, Q2W
     Route: 048
  4. BENADRYL [Concomitant]
     Indication: PREMEDICATION
     Dosage: 25 MG, Q2W
     Route: 048
     Dates: start: 20121001
  5. BENADRYL [Concomitant]
     Dosage: 50 MG, Q2W
     Route: 048
     Dates: start: 20121019
  6. RANITIDINE [Concomitant]
     Indication: PREMEDICATION
     Dosage: 150 MG, Q2W
     Route: 048
  7. ASA [Concomitant]
     Indication: CEREBROVASCULAR ACCIDENT PROPHYLAXIS
     Dosage: 81 MG, QD
     Route: 048
  8. CALCIUM [Concomitant]
     Indication: OSTEOPOROSIS PROPHYLAXIS
     Dosage: 600 MG, TID
     Route: 048
  9. GLUCOSAMINE SULFATE W [Concomitant]
     Indication: ARTHRALGIA
     Dosage: UNK
     Route: 048
  10. TYLENOL ARTHRITIS [Concomitant]
     Indication: ARTHRALGIA
     Dosage: UNK
     Route: 048
  11. FLOVENT [Concomitant]
     Indication: PULMONARY FUNCTION TEST DECREASED
     Dosage: UNK
     Route: 065
  12. ATROVENT [Concomitant]
     Indication: PULMONARY FUNCTION TEST DECREASED
     Dosage: UNK
     Route: 065
  13. VALTREX [Concomitant]
     Indication: ORAL HERPES
     Dosage: 1500 MG, QD, (1000 MG A.M. + 500 MG P.M.)
     Route: 048
  14. LIPITOR [Concomitant]
     Indication: BLOOD CHOLESTEROL INCREASED
     Dosage: 26 MG, QD
     Route: 048
     Dates: start: 20110915
  15. NITROGLYCERIN [Concomitant]
     Indication: CHEST PAIN
     Dosage: UNK
     Route: 060
     Dates: start: 20111014
  16. NITROGLYCERIN [Concomitant]
     Indication: ANGINA PECTORIS
  17. VITAMIN D [Concomitant]
     Indication: OSTEOPOROSIS PROPHYLAXIS
     Dosage: UNK
     Route: 048
     Dates: start: 2010

REACTIONS (2)
  - Herpes zoster [Unknown]
  - Chest pain [Unknown]
